FAERS Safety Report 4921378-6 (Version None)
Quarter: 2006Q1

REPORT INFORMATION
  Report Type: 
  Country: None (occurrence: None)
  Receive Date: 20060224
  Receipt Date: 20051107
  Transmission Date: 20060701
  Serious: Yes (Disabling)
  Sender: FDA-Public Use
  Company Number: ESWYE120007NOV05

PATIENT
  Sex: Male

DRUGS (7)
  1. ENBREL [Suspect]
     Indication: PSORIATIC ARTHROPATHY
     Route: 058
     Dates: start: 20040510, end: 20050512
  2. ENBREL [Suspect]
     Route: 058
     Dates: start: 20050505, end: 20050512
  3. FOLIC ACID [Concomitant]
     Route: 048
     Dates: start: 20031013, end: 20040927
  4. INDOMETHACIN [Concomitant]
     Route: 048
     Dates: start: 20010101
  5. ACETAMINOPHEN [Concomitant]
     Dosage: AS PER NEEDED
     Route: 048
     Dates: start: 20010101
  6. OMEPRAZOLE [Concomitant]
     Indication: PROPHYLAXIS AGAINST GASTROINTESTINAL ULCER
     Route: 048
     Dates: start: 20010101
  7. METHOTREXATE [Concomitant]
     Route: 048
     Dates: start: 20031013, end: 20040427

REACTIONS (3)
  - BLINDNESS UNILATERAL [None]
  - CORNEAL TRANSPLANT [None]
  - KERATITIS [None]
